FAERS Safety Report 11005858 (Version 2)
Quarter: 2016Q2

REPORT INFORMATION
  Report Type: Spontaneous
  Country: US (occurrence: US)
  Receive Date: 20150409
  Receipt Date: 20160415
  Transmission Date: 20160815
  Serious: No
  Sender: FDA-Public Use
  Company Number: US-ALLERGAN-1503520US

PATIENT
  Sex: Female
  Weight: 47.62 kg

DRUGS (1)
  1. LUMIGAN [Suspect]
     Active Substance: BIMATOPROST
     Indication: GLAUCOMA
     Dosage: 2 GTT, QHS
     Route: 047
     Dates: start: 20140813

REACTIONS (2)
  - Abnormal sensation in eye [Not Recovered/Not Resolved]
  - Dry eye [Not Recovered/Not Resolved]
